FAERS Safety Report 21890708 (Version 1)
Quarter: 2023Q1

REPORT INFORMATION
  Report Type: Spontaneous
  Country: US (occurrence: None)
  Receive Date: 20230119
  Receipt Date: 20230119
  Transmission Date: 20230417
  Serious: No
  Sender: FDA-Public Use
  Company Number: None

PATIENT
  Age: 49 Year
  Sex: Male

DRUGS (1)
  1. GLEOSTINE [Suspect]
     Active Substance: LOMUSTINE
     Dosage: FREQUENCY : DAILY;?
     Route: 048
     Dates: start: 202212

REACTIONS (1)
  - Paralysis [None]

NARRATIVE: CASE EVENT DATE: 20230119
